FAERS Safety Report 5226772-4 (Version None)
Quarter: 2007Q1

REPORT INFORMATION
  Report Type: 
  Country: None (occurrence: None)
  Receive Date: 20070130
  Receipt Date: 20070116
  Transmission Date: 20070707
  Serious: Yes (Other)
  Sender: FDA-Public Use
  Company Number: FABR-11822

PATIENT
  Age: 27 Year
  Sex: Male
  Weight: 70 kg

DRUGS (3)
  1. FABRAZYME [Suspect]
     Indication: FABRY'S DISEASE
     Dosage: 70 MG Q2WKS IV
     Route: 042
     Dates: start: 20030801
  2. PARACETAMOL [Concomitant]
  3. PIRITON [Concomitant]

REACTIONS (12)
  - AURICULAR SWELLING [None]
  - BLISTER [None]
  - BODY TEMPERATURE DECREASED [None]
  - CATHETER SITE RASH [None]
  - EYELID OEDEMA [None]
  - FLUSHING [None]
  - NAUSEA [None]
  - PARAESTHESIA ORAL [None]
  - RASH ERYTHEMATOUS [None]
  - TENSION HEADACHE [None]
  - URTICARIA GENERALISED [None]
  - VOMITING [None]
